FAERS Safety Report 24396327 (Version 1)
Quarter: 2024Q4

REPORT INFORMATION
  Report Type: Other
  Country: JP (occurrence: JP)
  Receive Date: 20241004
  Receipt Date: 20241004
  Transmission Date: 20250115
  Serious: Yes (Life-Threatening, Hospitalization, Other)
  Sender: EMD SERONO INC
  Company Number: JP-Merck Healthcare KGaA-2024051890

PATIENT
  Age: 77 Year
  Sex: Female

DRUGS (1)
  1. METGLUCO [Suspect]
     Active Substance: METFORMIN HYDROCHLORIDE
     Indication: Product used for unknown indication
     Route: 048

REACTIONS (8)
  - Cardiac arrest [Unknown]
  - Circulatory collapse [Unknown]
  - Stress cardiomyopathy [Unknown]
  - Renal disorder [Unknown]
  - Hypothermia [Unknown]
  - Anuria [Unknown]
  - Urinary tract infection [Unknown]
  - Lactic acidosis [Unknown]
